FAERS Safety Report 15619586 (Version 2)
Quarter: 2018Q4

REPORT INFORMATION
  Report Type: Spontaneous
  Country: JP (occurrence: JP)
  Receive Date: 20181115
  Receipt Date: 20181212
  Transmission Date: 20190205
  Serious: Yes (Other)
  Sender: FDA-Public Use
  Company Number: JP-009507513-1811JPN000725J

PATIENT
  Age: 80 Year
  Sex: Male

DRUGS (3)
  1. DOGMATYL [Concomitant]
     Active Substance: SULPIRIDE
     Dosage: 100 MILLIGRAM
     Route: 065
  2. MYSLEE [Concomitant]
     Active Substance: ZOLPIDEM TARTRATE
     Dosage: 5 MILLIGRAM
     Route: 065
  3. BELSOMRA [Suspect]
     Active Substance: SUVOREXANT
     Dosage: 15 MILLIGRAM
     Route: 048

REACTIONS (3)
  - Urinary incontinence [Unknown]
  - Delirium [Unknown]
  - Fall [Unknown]
